FAERS Safety Report 8947892 (Version 1)
Quarter: 2012Q4

REPORT INFORMATION
  Report Type: Spontaneous
  Country: DK (occurrence: None)
  Receive Date: 20121127
  Receipt Date: 20121127
  Transmission Date: 20130627
  Serious: Yes (Hospitalization)
  Sender: FDA-Public Use
  Company Number: 2012MA013478

PATIENT
  Age: 77 Year
  Sex: Female

DRUGS (6)
  1. CITALOPRAM HYDROBROMIDE [Suspect]
     Indication: DEPRESSION
     Route: 048
     Dates: start: 201208, end: 20120928
  2. FENOFIBRATE [Concomitant]
  3. PARACETAMOL [Concomitant]
  4. ACETYLSALICYLIC ACID [Concomitant]
  5. ATORVASTATIN [Concomitant]
  6. SIMVASTATIN [Concomitant]

REACTIONS (3)
  - Fall [None]
  - Head injury [None]
  - Convulsion [None]
